FAERS Safety Report 11464990 (Version 6)
Quarter: 2018Q1

REPORT INFORMATION
  Report Type: Report from Study
  Country: GB (occurrence: GB)
  Receive Date: 20150907
  Receipt Date: 20180305
  Transmission Date: 20180508
  Serious: Yes (Hospitalization, Other)
  Sender: FDA-Public Use
  Company Number: GB-AMGEN-GBRSL2015090741

PATIENT
  Age: 70 Year
  Sex: Male

DRUGS (3)
  1. ARANESP [Suspect]
     Active Substance: DARBEPOETIN ALFA
     Dosage: 30 MUG, UNK
     Route: 065
  2. ARANESP [Suspect]
     Active Substance: DARBEPOETIN ALFA
     Indication: PRODUCT USED FOR UNKNOWN INDICATION
     Dosage: 40 MUG, QWK
     Route: 065
  3. ARANESP [Suspect]
     Active Substance: DARBEPOETIN ALFA
     Dosage: 20 MUG, QWK
     Route: 065

REACTIONS (7)
  - Mineral supplementation [Unknown]
  - Angioplasty [Unknown]
  - Ill-defined disorder [Unknown]
  - Gastric ulcer [Unknown]
  - Dialysis [Unknown]
  - Leg amputation [Unknown]
  - Haemodialysis [Unknown]

NARRATIVE: CASE EVENT DATE: 201509
